FAERS Safety Report 13519655 (Version 1)
Quarter: 2017Q2

REPORT INFORMATION
  Report Type: Spontaneous
  Country: CA (occurrence: CA)
  Receive Date: 20170505
  Receipt Date: 20170505
  Transmission Date: 20170830
  Serious: Yes (Life-Threatening, Hospitalization, Other)
  Sender: FDA-Public Use
  Company Number: CA-ABBVIE-17K-028-1963558-00

PATIENT
  Age: 83 Year
  Sex: Male

DRUGS (14)
  1. MEROPENEM. [Suspect]
     Active Substance: MEROPENEM
     Indication: URINARY TRACT INFECTION
     Route: 042
  2. METRONIDAZOLE. [Suspect]
     Active Substance: METRONIDAZOLE
     Indication: IMMUNODEFICIENCY
  3. VANCOMYCIN [Suspect]
     Active Substance: VANCOMYCIN
     Indication: IMMUNODEFICIENCY
  4. MEROPENEM. [Suspect]
     Active Substance: MEROPENEM
     Indication: PSEUDOMONAS INFECTION
  5. ACYCLOVIR. [Suspect]
     Active Substance: ACYCLOVIR
     Indication: HERPES SIMPLEX OESOPHAGITIS
     Route: 042
  6. MYCAMINE [Suspect]
     Active Substance: MICAFUNGIN SODIUM
     Indication: PRODUCT USED FOR UNKNOWN INDICATION
     Route: 042
  7. VANCOMYCIN [Suspect]
     Active Substance: VANCOMYCIN
     Indication: KIDNEY INFECTION
     Route: 065
  8. METRONIDAZOLE. [Suspect]
     Active Substance: METRONIDAZOLE
     Indication: URETHRITIS
     Route: 042
  9. VANCOMYCIN [Suspect]
     Active Substance: VANCOMYCIN
     Indication: CLOSTRIDIUM DIFFICILE INFECTION
  10. METRONIDAZOLE. [Suspect]
     Active Substance: METRONIDAZOLE
     Indication: CLOSTRIDIUM DIFFICILE INFECTION
  11. MYCAMINE [Suspect]
     Active Substance: MICAFUNGIN SODIUM
     Indication: CLOSTRIDIUM DIFFICILE INFECTION
  12. HUMIRA [Suspect]
     Active Substance: ADALIMUMAB
     Indication: RHEUMATOID ARTHRITIS
     Route: 058
  13. MEROPENEM. [Suspect]
     Active Substance: MEROPENEM
     Indication: IMMUNODEFICIENCY
  14. MYCAMINE [Suspect]
     Active Substance: MICAFUNGIN SODIUM
     Indication: IMMUNODEFICIENCY

REACTIONS (8)
  - Asthenia [Unknown]
  - Dysphagia [Unknown]
  - Anaemia [Unknown]
  - C-reactive protein increased [Unknown]
  - Glomerular filtration rate decreased [Unknown]
  - Renal failure [Unknown]
  - Herpes simplex oesophagitis [Unknown]
  - White blood cell count increased [Unknown]
